FAERS Safety Report 8352631-4 (Version None)
Quarter: 2012Q2

REPORT INFORMATION
  Report Type: 
  Country: None (occurrence: None)
  Receive Date: 20120511
  Receipt Date: 20120503
  Transmission Date: 20120825
  Serious: Yes (Life-Threatening, Hospitalization)
  Sender: FDA-Public Use
  Company Number: RU-SANOFI-AVENTIS-2012SA016386

PATIENT
  Age: 57 Year
  Sex: Male
  Weight: 86 kg

DRUGS (5)
  1. DOCETAXEL [Suspect]
     Route: 041
     Dates: start: 20120111, end: 20120111
  2. DOCETAXEL [Suspect]
     Indication: NON-SMALL CELL LUNG CANCER STAGE IV
     Route: 041
     Dates: start: 20111221, end: 20111221
  3. BLINDED THERAPY [Suspect]
     Indication: NON-SMALL CELL LUNG CANCER STAGE IV
     Route: 042
     Dates: start: 20111221, end: 20111221
  4. ENALAPRIL MALEATE [Concomitant]
     Dates: start: 20111001
  5. BLINDED THERAPY [Suspect]
     Route: 042
     Dates: start: 20120111, end: 20120111

REACTIONS (2)
  - CEREBRAL HAEMORRHAGE [None]
  - GLIOBLASTOMA [None]
